FAERS Safety Report 14012744 (Version 1)
Quarter: 2017Q3

REPORT INFORMATION
  Report Type: Not Available
  Country: None (occurrence: US)
  Receive Date: 20170926
  Receipt Date: 20170926
  Transmission Date: 20171128
  Serious: No
  Sender: FDA-Public Use
  Company Number: US-AKORN-62482

PATIENT
  Sex: Female

DRUGS (1)
  1. KETOTIFEN FUMARATE- KETOTIFEN FUMARATE SOLUTION/ DROPS [Suspect]
     Active Substance: KETOTIFEN FUMARATE

REACTIONS (1)
  - Swelling face [Recovered/Resolved]
